FAERS Safety Report 7718803-4 (Version None)
Quarter: 2011Q3

REPORT INFORMATION
  Report Type: 
  Country: None (occurrence: None)
  Receive Date: 20110830
  Receipt Date: 20110818
  Transmission Date: 20111222
  Serious: Yes (Death, Hospitalization)
  Sender: FDA-Public Use
  Company Number: FR-PFIZER INC-2011199141

PATIENT
  Age: 80 Year
  Sex: Male

DRUGS (8)
  1. SPIRIVA [Concomitant]
  2. CALCIDOSE VITAMINE D [Concomitant]
  3. FERROUS SULFATE [Concomitant]
  4. CORDARONE [Suspect]
     Dosage: 200 MG, UNK
     Route: 048
     Dates: end: 20110523
  5. BEFIZAL [Concomitant]
  6. ANDROCUR [Concomitant]
  7. AUGMENTIN '125' [Suspect]
     Indication: URINARY TRACT INFECTION
     Dosage: UNK
     Route: 048
     Dates: start: 20110509, end: 20110517
  8. NICERGOLINE [Concomitant]

REACTIONS (4)
  - CHOLANGITIS [None]
  - HEPATIC CIRRHOSIS [None]
  - HEPATIC FAILURE [None]
  - PANCREATITIS ACUTE [None]
